FAERS Safety Report 5643035-3 (Version None)
Quarter: 2008Q1

REPORT INFORMATION
  Report Type: 
  Country: None (occurrence: None)
  Receive Date: 20080228
  Receipt Date: 20080219
  Transmission Date: 20080703
  Serious: Yes (Hospitalization)
  Sender: FDA-Public Use
  Company Number: PHHO2008DE01784

PATIENT
  Age: 52 Year
  Sex: Male

DRUGS (3)
  1. MYFORTIC [Suspect]
     Indication: RENAL TRANSPLANT
     Dosage: 360 MG, BID
     Route: 048
     Dates: start: 20070608
  2. PROGRAF [Suspect]
     Indication: RENAL TRANSPLANT
     Dates: start: 20070608
  3. URBASON [Concomitant]

REACTIONS (2)
  - PARACENTESIS [None]
  - PERITONITIS BACTERIAL [None]
